FAERS Safety Report 9506300 (Version 1)
Quarter: 2013Q1

REPORT INFORMATION
  Report Type: Spontaneous
  Country: US (occurrence: None)
  Receive Date: 20130305
  Receipt Date: 20130305
  Transmission Date: 20140127
  Serious: Yes (Other)
  Sender: FDA-Public Use
  Company Number: 163-21880-12051053

PATIENT
  Age: 53 Year
  Sex: Female

DRUGS (10)
  1. REVLIMID (LENALIDOMIDE) (15 MILLIGRAM, CAPSULES) [Suspect]
     Indication: LYMPHOMA
     Dosage: 15 MG, QD X 21/28 DAYS, PO
     Route: 048
     Dates: start: 201203, end: 20120420
  2. METOPROLOL TARTRATE (METOPROLOL TARTRATE) (TABLETS) (METOPROLOL TARTRATE) [Concomitant]
  3. FLUTICASONE (FLUTICASONE) [Concomitant]
  4. SERTRALINE (SERTRALINE) [Concomitant]
  5. QVAR (BECLOMETASONE DIPROPIONATE) [Concomitant]
  6. KCL (POTASSIUM CHLORIDE) [Concomitant]
  7. PROAIR (FLUTICASONE PROPIONATE) [Concomitant]
  8. AMILORIDE (AMILORIDE) [Concomitant]
  9. OMEPRAZOLE (OMEPRAZOLE) [Concomitant]
  10. ASPIRIN (ACETYLSALICYLIC ACID) [Concomitant]

REACTIONS (2)
  - Platelet count decreased [None]
  - Neutropenia [None]
